FAERS Safety Report 5848224-0 (Version None)
Quarter: 2008Q3

REPORT INFORMATION
  Report Type: 
  Country: None (occurrence: None)
  Receive Date: 20080818
  Receipt Date: 20080811
  Transmission Date: 20090109
  Serious: Yes (Hospitalization)
  Sender: FDA-Public Use
  Company Number: D0057970A

PATIENT
  Age: 68 Year
  Sex: Male

DRUGS (2)
  1. LAMICTAL [Suspect]
     Dosage: 100MG SEE DOSAGE TEXT
     Route: 048
     Dates: start: 20080704, end: 20080704
  2. RIVOTRIL [Suspect]
     Dosage: .5MG SEE DOSAGE TEXT
     Route: 048
     Dates: start: 20080704, end: 20080704

REACTIONS (7)
  - COMA [None]
  - CONVULSION [None]
  - INTENTIONAL OVERDOSE [None]
  - MYDRIASIS [None]
  - RESPIRATORY FAILURE [None]
  - SHOCK [None]
  - SUICIDE ATTEMPT [None]
